FAERS Safety Report 24022114 (Version 2)
Quarter: 2024Q3

REPORT INFORMATION
  Report Type: Report from Study
  Country: US (occurrence: US)
  Receive Date: 20240627
  Receipt Date: 20240710
  Transmission Date: 20241016
  Serious: No
  Sender: ROCHE
  Company Number: US-ROCHE-3527477

PATIENT
  Age: 77 Year
  Sex: Female

DRUGS (2)
  1. VABYSMO [Suspect]
     Active Substance: FARICIMAB\FARICIMAB-SVOA
     Indication: Neovascular age-related macular degeneration
     Dosage: 6 MG (0.05ML)
     Route: 031
     Dates: start: 20231120
  2. VABYSMO [Suspect]
     Active Substance: FARICIMAB\FARICIMAB-SVOA
     Indication: Choroidal neovascularisation
     Dosage: DATE OF TREATMENT: 13/MAR/2023
     Route: 031
     Dates: start: 20230104

REACTIONS (2)
  - Amnesia [Not Recovered/Not Resolved]
  - Off label use [Unknown]
